FAERS Safety Report 23280444 (Version 2)
Quarter: 2024Q2

REPORT INFORMATION
  Report Type: Spontaneous
  Country: AR (occurrence: AR)
  Receive Date: 20231211
  Receipt Date: 20240523
  Transmission Date: 20240715
  Serious: Yes (Other)
  Sender: FDA-Public Use
  Company Number: AR-PFIZER INC-PV202300195262

PATIENT
  Age: 62 Year
  Sex: Female

DRUGS (1)
  1. ENBREL [Suspect]
     Active Substance: BENZYL ALCOHOL\ETANERCEPT
     Indication: Rheumatoid arthritis
     Dosage: 50 MILLIGRAM, QWK (50 MG, WEEKLY)
     Route: 065
     Dates: start: 20170920, end: 20231020

REACTIONS (4)
  - Infective spondylitis [Not Recovered/Not Resolved]
  - Asthenia [Not Recovered/Not Resolved]
  - Arthritis [Unknown]
  - Gait inability [Unknown]

NARRATIVE: CASE EVENT DATE: 20231001
